FAERS Safety Report 7284048-8 (Version None)
Quarter: 2011Q1

REPORT INFORMATION
  Report Type: 
  Country: None (occurrence: None)
  Receive Date: 20110209
  Receipt Date: 20110208
  Transmission Date: 20110831
  Serious: No
  Sender: FDA-Public Use
  Company Number: US-ELI_LILLY_AND_COMPANY-US201101001787

PATIENT
  Sex: Female
  Weight: 143.31 kg

DRUGS (2)
  1. ACTOS [Concomitant]
  2. HUMALOG [Suspect]
     Indication: DIABETES MELLITUS
     Dosage: UNK, AS NEEDED
     Dates: start: 20100917

REACTIONS (2)
  - BURNING SENSATION [None]
  - BLOOD GLUCOSE INCREASED [None]
